FAERS Safety Report 26156256 (Version 1)
Quarter: 2025Q4

REPORT INFORMATION
  Report Type: Spontaneous
  Country: JP (occurrence: JP)
  Receive Date: 20251215
  Receipt Date: 20251215
  Transmission Date: 20260117
  Serious: Yes (Death, Life-Threatening, Hospitalization)
  Sender: STRIDES
  Company Number: None

PATIENT
  Age: 76 Year
  Sex: Female
  Weight: 39.2 kg

DRUGS (4)
  1. PREDNISOLONE [Suspect]
     Active Substance: PREDNISOLONE
     Indication: Seronegative arthritis
     Dosage: 5 MILLIGRAM
     Route: 065
  2. PREDNISOLONE [Suspect]
     Active Substance: PREDNISOLONE
     Dosage: PREDNISOLONE 35 MG (0.68 MG/STANDARD WEIGHT/DAY) WAS INITIATED ON DAY 24
     Route: 065
  3. ALFACALCIDOL [Suspect]
     Active Substance: ALFACALCIDOL
     Indication: Seronegative arthritis
     Dosage: 0.5 MICROGRAM, QD
     Route: 065
  4. ALFACALCIDOL [Suspect]
     Active Substance: ALFACALCIDOL
     Indication: Vitamin supplementation

REACTIONS (6)
  - Crystal nephropathy [Fatal]
  - Acute kidney injury [Fatal]
  - Acute kidney injury [Fatal]
  - Thrombotic microangiopathy [Fatal]
  - Pleural effusion [Fatal]
  - Respiratory failure [Fatal]
